FAERS Safety Report 5048711-1 (Version None)
Quarter: 2006Q3

REPORT INFORMATION
  Report Type: 
  Country: None (occurrence: None)
  Receive Date: 20060705
  Receipt Date: 20060621
  Transmission Date: 20061208
  Serious: Yes (Death, Hospitalization)
  Sender: FDA-Public Use
  Company Number: NLWYE717312JUN06

PATIENT
  Sex: Male

DRUGS (4)
  1. RAPAMUNE [Suspect]
     Indication: RENAL TRANSPLANT
     Dosage: 8 MG 1X PER 1 DAY; SEE IMAGE
     Dates: start: 20060101, end: 20060101
  2. RAPAMUNE [Suspect]
     Indication: RENAL TRANSPLANT
     Dosage: 8 MG 1X PER 1 DAY; SEE IMAGE
     Dates: start: 20060101, end: 20060101
  3. RAPAMUNE [Suspect]
     Indication: RENAL TRANSPLANT
     Dosage: 8 MG 1X PER 1 DAY; SEE IMAGE
     Dates: start: 20060101
  4. PREDNISONE TAB [Concomitant]

REACTIONS (1)
  - PNEUMONITIS [None]
